FAERS Safety Report 9484228 (Version 1)
Quarter: 2013Q3

REPORT INFORMATION
  Report Type: Spontaneous
  Country: US (occurrence: US)
  Receive Date: 20130828
  Receipt Date: 20130828
  Transmission Date: 20140515
  Serious: Yes (Hospitalization)
  Sender: FDA-Public Use
  Company Number: US-AMGEN-KDL394609

PATIENT
  Age: 39 Year
  Sex: Female

DRUGS (1)
  1. ENBREL [Suspect]
     Indication: PSORIASIS
     Dosage: 50 MG, QWK
     Route: 058
     Dates: start: 20040901

REACTIONS (8)
  - Fall [Recovered/Resolved]
  - Neck injury [Recovered/Resolved]
  - Arterial haemorrhage [Recovered/Resolved]
  - Arterial disorder [Recovered/Resolved]
  - Cerebrovascular accident [Unknown]
  - Cholelithiasis [Recovered/Resolved]
  - Psoriasis [Not Recovered/Not Resolved]
  - Injection site pain [Not Recovered/Not Resolved]
